FAERS Safety Report 23060015 (Version 1)
Quarter: 2023Q4

REPORT INFORMATION
  Report Type: Spontaneous
  Country: IT (occurrence: IT)
  Receive Date: 20231012
  Receipt Date: 20231012
  Transmission Date: 20240110
  Serious: Yes (Other)
  Sender: FDA-Public Use
  Company Number: IT-JNJFOC-20231003646

PATIENT
  Age: 13 Year
  Sex: Female
  Weight: 55 kg

DRUGS (1)
  1. RISPERDAL [Suspect]
     Active Substance: RISPERIDONE
     Indication: Product used for unknown indication
     Route: 048

REACTIONS (5)
  - Intentional self-injury [Unknown]
  - Dystonia [Unknown]
  - Conduction disorder [Unknown]
  - Dyskinesia [Unknown]
  - Overdose [Unknown]
